FAERS Safety Report 8666390 (Version 3)
Quarter: 2012Q4

REPORT INFORMATION
  Report Type: Report from Study
  Country: DE (occurrence: DE)
  Receive Date: 20120716
  Receipt Date: 20121031
  Transmission Date: 20130627
  Serious: Yes (Life-Threatening, Hospitalization)
  Sender: FDA-Public Use
  Company Number: DE-ROCHE-1062868

PATIENT
  Age: 54 Year
  Sex: Male
  Weight: 60 kg

DRUGS (10)
  1. PEG-INTERFERON ALFA 2A [Suspect]
     Indication: HEPATITIS C
     Route: 058
     Dates: start: 20120123, end: 20120412
  2. RIBAVIRIN [Suspect]
     Indication: HEPATITIS C
     Route: 048
     Dates: start: 20120123
  3. RIBAVIRIN [Suspect]
     Route: 048
     Dates: start: 20120206
  4. RIBAVIRIN [Suspect]
     Route: 048
     Dates: start: 20120227, end: 20120412
  5. VICTRELIS [Suspect]
     Indication: HEPATITIS C
     Route: 048
     Dates: start: 20120220, end: 20120412
  6. OMEPRAZOL [Concomitant]
     Indication: GASTRITIS
     Route: 048
  7. REKAWAN [Concomitant]
     Indication: HYPOKALAEMIA
     Route: 048
  8. DEKRISTOL [Concomitant]
     Indication: VITAMIN D DEFICIENCY
     Route: 048
  9. SUMATRIPTAN [Concomitant]
     Indication: MIGRAINE
     Route: 048
  10. L-POLAMIDON [Concomitant]
     Indication: DRUG DEPENDENCE
     Route: 048

REACTIONS (4)
  - Neutropenia [Recovered/Resolved]
  - Cellulitis [Recovered/Resolved]
  - Bone marrow failure [Recovered/Resolved]
  - Cellulitis [Recovered/Resolved]
